FAERS Safety Report 5054007-4 (Version None)
Quarter: 2006Q3

REPORT INFORMATION
  Report Type: 
  Country: None (occurrence: None)
  Receive Date: 20060713
  Receipt Date: 20060630
  Transmission Date: 20061208
  Serious: Yes (Hospitalization)
  Sender: FDA-Public Use
  Company Number: 2006-02667

PATIENT
  Age: 40 Year
  Sex: Female

DRUGS (1)
  1. TRELSTAR DEPOT [Suspect]
     Indication: BREAST CANCER
     Dosage: INTRAMUSCULAR
     Route: 030
     Dates: start: 20060330

REACTIONS (3)
  - INFECTION [None]
  - OXYGEN SATURATION DECREASED [None]
  - PYREXIA [None]
